FAERS Safety Report 15413120 (Version 1)
Quarter: 2018Q3

REPORT INFORMATION
  Report Type: Spontaneous
  Country: CN (occurrence: CN)
  Receive Date: 20180921
  Receipt Date: 20180921
  Transmission Date: 20181010
  Serious: Yes (Hospitalization)
  Sender: FDA-Public Use
  Company Number: CN-PFIZER INC-2018375065

PATIENT
  Age: 55 Year
  Sex: Male

DRUGS (3)
  1. CELEBREX [Suspect]
     Active Substance: CELECOXIB
     Indication: ANKYLOSING SPONDYLITIS
     Dosage: 200 MG, 2X/DAY
     Route: 048
  2. THALIDOMIDE [Concomitant]
     Active Substance: THALIDOMIDE
     Indication: ANKYLOSING SPONDYLITIS
  3. SULFASALAZINE. [Concomitant]
     Active Substance: SULFASALAZINE
     Indication: ANKYLOSING SPONDYLITIS

REACTIONS (8)
  - Drug hypersensitivity [Recovering/Resolving]
  - Drug eruption [Recovering/Resolving]
  - Eye swelling [Recovering/Resolving]
  - Conjunctival hyperaemia [Recovering/Resolving]
  - Rash erythematous [Recovering/Resolving]
  - Hypoaesthesia oral [Recovering/Resolving]
  - Mouth swelling [Recovering/Resolving]
  - Mouth ulceration [Recovering/Resolving]
